FAERS Safety Report 26166594 (Version 1)
Quarter: 2025Q4

REPORT INFORMATION
  Report Type: Spontaneous
  Country: US (occurrence: US)
  Receive Date: 20251217
  Receipt Date: 20251217
  Transmission Date: 20260118
  Serious: No
  Sender: CELLTRION
  Company Number: US-CELLTRION INC.-2025US014070

PATIENT

DRUGS (8)
  1. RITUXIMAB [Suspect]
     Active Substance: RITUXIMAB
     Indication: Autoimmune haemolytic anaemia
     Dosage: WEEKLY RITUXIMAB WAS INITIATED, OF WHICH SHE RECEIVED THREE DOSES
  2. RITUXIMAB [Suspect]
     Active Substance: RITUXIMAB
     Dosage: WEEKLY RITUXIMAB WAS INITIATED, OF WHICH SHE RECEIVED THREE DOSES
  3. RITUXIMAB [Suspect]
     Active Substance: RITUXIMAB
     Dosage: WEEKLY RITUXIMAB WAS INITIATED, OF WHICH SHE RECEIVED THREE DOSES
  4. RITUXIMAB [Suspect]
     Active Substance: RITUXIMAB
     Dosage: FOURTH OUTPATIENT DOSE
  5. CARBOPLATIN [Suspect]
     Active Substance: CARBOPLATIN
     Indication: Endometrial cancer
     Dosage: WITH A PLAN TO REASSESS DISEASE BURDEN AFTER THREE TO FOUR CYCLES OF TREATMENT
  6. PACLITAXEL [Suspect]
     Active Substance: PACLITAXEL
     Indication: Endometrial cancer
     Dosage: WITH A PLAN TO REASSESS DISEASE BURDEN AFTER THREE TO FOUR CYCLES OF TREATMENT
  7. DOSTARLIMAB [Suspect]
     Active Substance: DOSTARLIMAB
     Indication: Endometrial cancer
     Dosage: WITH A PLAN TO REASSESS DISEASE BURDEN AFTER THREE TO FOUR CYCLES OF TREATMENT
  8. PREDNISONE [Suspect]
     Active Substance: PREDNISONE
     Indication: Autoimmune haemolytic anaemia
     Dosage: PREDNISONE TAPER

REACTIONS (1)
  - Drug effective for unapproved indication [Unknown]
